FAERS Safety Report 23712691 (Version 1)
Quarter: 2024Q2

REPORT INFORMATION
  Report Type: Spontaneous
  Country: US (occurrence: None)
  Receive Date: 20240405
  Receipt Date: 20240405
  Transmission Date: 20240715
  Serious: Yes (Hospitalization)
  Sender: FDA-Public Use
  Company Number: None

PATIENT
  Age: 2 Year
  Sex: Male
  Weight: 17.8 kg

DRUGS (5)
  1. CALASPARGASE PEGOL [Suspect]
     Active Substance: CALASPARGASE PEGOL
     Dates: end: 20240223
  2. CYTARABINE [Suspect]
     Active Substance: CYTARABINE
     Dates: end: 20240219
  3. DEXAMETHASONE [Concomitant]
     Dates: end: 20240318
  4. METHOTREXATE [Suspect]
     Active Substance: METHOTREXATE
     Dates: end: 20240319
  5. VINCRISTINE SULFATE [Suspect]
     Active Substance: VINCRISTINE SULFATE
     Dates: end: 20240312

REACTIONS (2)
  - Pyrexia [None]
  - CSF white blood cell count positive [None]

NARRATIVE: CASE EVENT DATE: 20240326
